FAERS Safety Report 23333055 (Version 1)
Quarter: 2023Q4

REPORT INFORMATION
  Report Type: Spontaneous
  Country: DE (occurrence: DE)
  Receive Date: 20231222
  Receipt Date: 20231222
  Transmission Date: 20240110
  Serious: Yes (Other)
  Sender: FDA-Public Use
  Company Number: DE-CADRBFARM-2023322118

PATIENT
  Age: 16 Year
  Sex: Female
  Weight: 55 kg

DRUGS (2)
  1. SERTRALINE [Suspect]
     Active Substance: SERTRALINE HYDROCHLORIDE
     Indication: Social anxiety disorder
     Dosage: 100 MG
     Route: 048
     Dates: end: 2023
  2. SERTRALINE [Suspect]
     Active Substance: SERTRALINE HYDROCHLORIDE
     Dosage: 100 MG
     Route: 048
     Dates: end: 201905

REACTIONS (13)
  - Mental impairment [Not Recovered/Not Resolved]
  - Mental impairment [Not Recovered/Not Resolved]
  - Memory impairment [Not Recovered/Not Resolved]
  - Anorgasmia [Not Recovered/Not Resolved]
  - Vulvovaginal dryness [Unknown]
  - Loss of libido [Recovered/Resolved]
  - Aphasia [Not Recovered/Not Resolved]
  - Frustration tolerance decreased [Unknown]
  - Sexual dysfunction [Not Recovered/Not Resolved]
  - Brain fog [Not Recovered/Not Resolved]
  - Genital anaesthesia [Unknown]
  - Sensory disturbance [Not Recovered/Not Resolved]
  - Genital dysaesthesia [Not Recovered/Not Resolved]

NARRATIVE: CASE EVENT DATE: 20160501
